FAERS Safety Report 6100480-X (Version None)
Quarter: 2009Q1

REPORT INFORMATION
  Report Type: 
  Country: None (occurrence: None)
  Receive Date: 20090303
  Receipt Date: 20090224
  Transmission Date: 20090719
  Serious: Yes (Life-Threatening, Hospitalization)
  Sender: FDA-Public Use
  Company Number: NL-ABBOTT-09P-114-0559027-00

PATIENT
  Sex: Male

DRUGS (5)
  1. HUMIRA [Suspect]
     Indication: RHEUMATOID ARTHRITIS
     Dates: start: 20081212, end: 20090112
  2. ATENOLOL [Concomitant]
     Indication: DRUG USE FOR UNKNOWN INDICATION
     Route: 048
  3. MORPHINE HCL ELIXIR [Concomitant]
     Indication: DRUG USE FOR UNKNOWN INDICATION
     Route: 048
  4. SALZOPYRINE [Concomitant]
     Indication: DRUG USE FOR UNKNOWN INDICATION
     Dosage: 500MG- X2 DAILY 3 TABLETS
     Route: 048
  5. NAPORIXEN [Concomitant]
     Indication: DRUG USE FOR UNKNOWN INDICATION

REACTIONS (4)
  - CONTUSION [None]
  - DYSPNOEA [None]
  - HYPERTENSION [None]
  - SOMNOLENCE [None]
